FAERS Safety Report 10035595 (Version 1)
Quarter: 2014Q1

REPORT INFORMATION
  Report Type: Spontaneous
  Country: FR (occurrence: None)
  Receive Date: 20140321
  Receipt Date: 20140321
  Transmission Date: 20141002
  Serious: Yes (Hospitalization)
  Sender: FDA-Public Use
  Company Number: FR-2014-0720

PATIENT
  Age: 55 Year
  Sex: Female

DRUGS (12)
  1. NAVELBINE [Suspect]
     Indication: SQUAMOUS CELL CARCINOMA OF LUNG
     Dosage: DAYS 1 AND 8, CYCLICAL (1/21), DAY 1, DAY 8
     Route: 042
     Dates: start: 20140115, end: 20140204
  2. CISPLATIN (CISPLATIN) [Concomitant]
  3. EUPANTOL (PANTOPRAZOLE SODIUM SESQUIHYDRATE) [Concomitant]
  4. DEPAKOTE (VALPROATE SEMISODIUM) [Concomitant]
  5. SERESTA (OXAZEPAM) [Concomitant]
  6. TERCIAN (CYAMEMAZINE) [Concomitant]
  7. LYRICA (PREGABALIN) [Concomitant]
  8. FUMAFER (FERROUS FUMARATE) [Concomitant]
  9. ATARAX (HYDROXYZINE HYDROCHLORIDE) [Concomitant]
  10. ZOPHREN (ONDANSETRON HYDROCHLORIDE) [Concomitant]
  11. SOLUMEDROL (METHYLPREDNISOLONE SODIUM SUCCINATE) [Concomitant]
  12. EMEND (APREPITANT) [Concomitant]

REACTIONS (4)
  - Acute coronary syndrome [None]
  - Electrocardiogram T wave inversion [None]
  - Chest pain [None]
  - Nausea [None]
